FAERS Safety Report 23917488 (Version 1)
Quarter: 2024Q2

REPORT INFORMATION
  Report Type: Report from Study
  Country: CA (occurrence: CA)
  Receive Date: 20240529
  Receipt Date: 20240529
  Transmission Date: 20240715
  Serious: Yes (Other)
  Sender: FDA-Public Use
  Company Number: CA-BIOGEN-2024BI01266622

PATIENT
  Sex: Male

DRUGS (1)
  1. SPINRAZA [Suspect]
     Active Substance: NUSINERSEN
     Indication: Spinal muscular atrophy
     Dosage: 0 DAYS, 14 DAYS,30 DAYS,  THEN EVERY 4 MONTHS
     Route: 050
     Dates: start: 20181122

REACTIONS (5)
  - Infection susceptibility increased [Unknown]
  - Oropharyngeal pain [Unknown]
  - Fatigue [Unknown]
  - Gait disturbance [Unknown]
  - Pyrexia [Unknown]
